FAERS Safety Report 5821485-X (Version None)
Quarter: 2008Q3

REPORT INFORMATION
  Report Type: 
  Country: None (occurrence: None)
  Receive Date: 20080724
  Receipt Date: 20080718
  Transmission Date: 20090109
  Serious: Yes (Other)
  Sender: FDA-Public Use
  Company Number: B0530536A

PATIENT
  Sex: Female

DRUGS (3)
  1. KIVEXA [Suspect]
     Indication: ANTIRETROVIRAL THERAPY
     Route: 065
  2. NEVIRAPINE [Concomitant]
     Indication: ANTIRETROVIRAL THERAPY
     Route: 065
  3. ORAL CONTRACEPTIVE PILL [Concomitant]
     Route: 048

REACTIONS (2)
  - ABDOMINAL PAIN [None]
  - PORTAL VEIN THROMBOSIS [None]
